FAERS Safety Report 24339608 (Version 1)
Quarter: 2024Q3

REPORT INFORMATION
  Report Type: Spontaneous
  Country: US (occurrence: None)
  Receive Date: 20240918
  Receipt Date: 20240918
  Transmission Date: 20241017
  Serious: Yes (Hospitalization)
  Sender: Public
  Company Number: None

PATIENT
  Age: 68 Year
  Sex: Male
  Weight: 75.15 kg

DRUGS (1)
  1. CEFTRIAXONE [Suspect]
     Active Substance: CEFTRIAXONE\CEFTRIAXONE SODIUM

REACTIONS (10)
  - Hallucinations, mixed [None]
  - Disorientation [None]
  - Speech disorder [None]
  - Memory impairment [None]
  - Balance disorder [None]
  - Dyspnoea [None]
  - Dry mouth [None]
  - Swollen tongue [None]
  - Hypersensitivity [None]
  - Respiratory disorder [None]
